FAERS Safety Report 5423520-X (Version None)
Quarter: 2007Q3

REPORT INFORMATION
  Report Type: 
  Country: None (occurrence: None)
  Receive Date: 20070823
  Receipt Date: 20070814
  Transmission Date: 20080115
  Serious: Yes (Death, Hospitalization)
  Sender: FDA-Public Use
  Company Number: US-AMGEN-STX238862

PATIENT
  Sex: Male

DRUGS (2)
  1. ENBREL [Suspect]
     Indication: RHEUMATOID ARTHRITIS
     Route: 058
     Dates: start: 20000920, end: 20070611
  2. METHOTREXATE [Concomitant]
     Route: 048
     Dates: start: 20000101

REACTIONS (5)
  - CEREBROVASCULAR ACCIDENT [None]
  - CONVULSION [None]
  - DEATH [None]
  - DIABETIC COMPLICATION [None]
  - UNRESPONSIVE TO STIMULI [None]
